FAERS Safety Report 13080662 (Version 3)
Quarter: 2017Q1

REPORT INFORMATION
  Report Type: Report from Study
  Country: None (occurrence: RO)
  Receive Date: 20170103
  Receipt Date: 20170306
  Transmission Date: 20170428
  Serious: Yes (Death, Hospitalization, Other)
  Sender: FDA-Public Use
  Company Number: RO-ABBVIE-16P-135-1825031-00

PATIENT
  Age: 66 Year
  Sex: Female

DRUGS (7)
  1. VIEKIRAX [Suspect]
     Active Substance: OMBITASVIR\PARITAPREVIR\RITONAVIR
     Indication: HEPATITIS C
     Route: 048
     Dates: start: 20160615, end: 20160906
  2. EXVIERA [Suspect]
     Active Substance: DASABUVIR
     Indication: HEPATITIS C
     Route: 048
     Dates: start: 20160615, end: 20160906
  3. VIEKIRAX [Suspect]
     Active Substance: OMBITASVIR\PARITAPREVIR\RITONAVIR
     Indication: HEPATIC CIRRHOSIS
  4. CARVEDILOL. [Concomitant]
     Active Substance: CARVEDILOL
     Indication: PRODUCT USED FOR UNKNOWN INDICATION
     Route: 048
     Dates: start: 2010
  5. SPIRONOLACTONE. [Concomitant]
     Active Substance: SPIRONOLACTONE
     Indication: PRODUCT USED FOR UNKNOWN INDICATION
     Route: 048
     Dates: start: 2010
  6. EXVIERA [Suspect]
     Active Substance: DASABUVIR
     Indication: HEPATIC CIRRHOSIS
  7. FUROSEMID [Concomitant]
     Active Substance: FUROSEMIDE
     Indication: PRODUCT USED FOR UNKNOWN INDICATION
     Route: 042
     Dates: start: 2010

REACTIONS (18)
  - Hepatic cancer [Fatal]
  - Pallor [Unknown]
  - Anuria [Fatal]
  - Intestinal infarction [Fatal]
  - Decreased appetite [Fatal]
  - Flatulence [Fatal]
  - Vascular occlusion [Fatal]
  - Internal haemorrhage [Unknown]
  - Intestinal infarction [Fatal]
  - Abdominal pain [Fatal]
  - Diarrhoea [Fatal]
  - Ascites [Fatal]
  - Hepatic cirrhosis [Fatal]
  - Vomiting [Fatal]
  - Anuria [Fatal]
  - Metabolic acidosis [Fatal]
  - Dry skin [Unknown]
  - Cardio-respiratory arrest [Fatal]

NARRATIVE: CASE EVENT DATE: 201612
